FAERS Safety Report 6254877-8 (Version None)
Quarter: 2009Q3

REPORT INFORMATION
  Report Type: 
  Country: None (occurrence: None)
  Receive Date: 20090702
  Receipt Date: 20090617
  Transmission Date: 20100115
  Serious: Yes (Hospitalization)
  Sender: FDA-Public Use
  Company Number: NZ-AVENTIS-200916434GDDC

PATIENT
  Age: 69 Year
  Sex: Male

DRUGS (5)
  1. LEFLUNOMIDE [Suspect]
     Dates: start: 20030505, end: 20060108
  2. METOPROLOL SUCCINATE [Concomitant]
  3. SIMVASTATIN [Concomitant]
     Dates: start: 20050101
  4. OMEPRAZOLE [Concomitant]
     Dates: start: 20050101
  5. COAXIL                             /00956301/ [Concomitant]
     Dates: start: 20050101

REACTIONS (5)
  - DECREASED APPETITE [None]
  - GRANULOMATOUS LIVER DISEASE [None]
  - PYREXIA [None]
  - TUBERCULOSIS [None]
  - WEIGHT DECREASED [None]
